FAERS Safety Report 25490537 (Version 2)
Quarter: 2025Q3

REPORT INFORMATION
  Report Type: Spontaneous
  Country: JP (occurrence: JP)
  Receive Date: 20250627
  Receipt Date: 20250728
  Transmission Date: 20251021
  Serious: Yes (Other)
  Sender: ELI LILLY AND COMPANY
  Company Number: JP-ELI_LILLY_AND_COMPANY-JP202506022415

PATIENT
  Age: 45 Year
  Sex: Male

DRUGS (3)
  1. OMVOH [Suspect]
     Active Substance: MIRIKIZUMAB-MRKZ
     Indication: Product used for unknown indication
     Route: 065
     Dates: start: 20250602
  2. PREDONINE [Suspect]
     Active Substance: PREDNISOLONE
     Indication: Product used for unknown indication
     Route: 065
  3. PREDONINE [Suspect]
     Active Substance: PREDNISOLONE
     Route: 065
     Dates: start: 202506

REACTIONS (2)
  - Ileus [Recovering/Resolving]
  - Physical deconditioning [Recovering/Resolving]

NARRATIVE: CASE EVENT DATE: 20250607
